FAERS Safety Report 25630098 (Version 3)
Quarter: 2025Q3

REPORT INFORMATION
  Report Type: Report from Study
  Country: US (occurrence: US)
  Receive Date: 20250801
  Receipt Date: 20250910
  Transmission Date: 20251020
  Serious: Yes (Hospitalization)
  Sender: ABBVIE
  Company Number: US-ABBVIE-6393285

PATIENT
  Age: 85 Year
  Sex: Female
  Weight: 38 kg

DRUGS (4)
  1. LUMIGAN [Suspect]
     Active Substance: BIMATOPROST
     Indication: Glaucoma
     Dosage: LUMIGAN 0.01%?PATIENT ROA: OPHTHALMIC
     Route: 065
     Dates: start: 2023
  2. OMEPRAZOLE [Concomitant]
     Active Substance: OMEPRAZOLE
     Indication: Gastrooesophageal reflux disease
  3. TIMOLOL [Concomitant]
     Active Substance: TIMOLOL
     Indication: Glaucoma
  4. ELIQUIS [Concomitant]
     Active Substance: APIXABAN
     Indication: Thrombosis

REACTIONS (6)
  - Fall [Recovering/Resolving]
  - Femur fracture [Recovering/Resolving]
  - Auditory disorder [Recovering/Resolving]
  - Balance disorder [Recovering/Resolving]
  - Weight decreased [Recovering/Resolving]
  - Lower respiratory tract infection fungal [Not Recovered/Not Resolved]

NARRATIVE: CASE EVENT DATE: 20240101
